FAERS Safety Report 9410432 (Version 2)
Quarter: 2016Q1

REPORT INFORMATION
  Report Type: Spontaneous
  Country: BR (occurrence: BR)
  Receive Date: 20130719
  Receipt Date: 20160121
  Transmission Date: 20160526
  Serious: Yes (Other)
  Sender: FDA-Public Use
  Company Number: BR-AMGEN-BRASP2012034428

PATIENT
  Age: 38 Year
  Sex: Female
  Weight: 94 kg

DRUGS (5)
  1. CELEBRA [Concomitant]
     Active Substance: CELECOXIB
     Dosage: 200 MG, UNK
  2. DEPURA [Concomitant]
     Active Substance: CHOLECALCIFEROL
     Dosage: UNK
  3. ENBREL [Suspect]
     Active Substance: ETANERCEPT
     Dosage: 50 MG, WEEKLY
     Route: 065
     Dates: end: 201304
  4. ENBREL [Suspect]
     Active Substance: ETANERCEPT
     Indication: ANKYLOSING SPONDYLITIS
     Dosage: 50 MG, 1X/WEEK
     Route: 058
     Dates: start: 2012
  5. ENBREL [Suspect]
     Active Substance: ETANERCEPT
     Dosage: UNK
     Route: 065
     Dates: end: 2015

REACTIONS (10)
  - Injection site pruritus [Unknown]
  - Injection site erythema [Unknown]
  - Rheumatic disorder [Unknown]
  - Cystitis [Not Recovered/Not Resolved]
  - Injection site haematoma [Unknown]
  - Dengue fever [Recovered/Resolved]
  - Injection site warmth [Unknown]
  - Rash macular [Unknown]
  - Pain [Unknown]
  - Injection site pain [Unknown]

NARRATIVE: CASE EVENT DATE: 201305
